FAERS Safety Report 22162576 (Version 1)
Quarter: 2023Q1

REPORT INFORMATION
  Report Type: Report from Study
  Country: KR (occurrence: None)
  Receive Date: 20230331
  Receipt Date: 20230331
  Transmission Date: 20230418
  Serious: Yes (Hospitalization)
  Sender: FDA-Public Use
  Company Number: 2023A049467

PATIENT
  Age: 26937 Day
  Sex: Male
  Weight: 57 kg

DRUGS (3)
  1. CERALASERTIB [Suspect]
     Active Substance: CERALASERTIB
     Indication: Bile duct cancer
     Route: 048
     Dates: start: 20230213, end: 20230219
  2. OLAPARIB [Suspect]
     Active Substance: OLAPARIB
     Indication: Bile duct cancer
     Route: 048
     Dates: start: 20230213, end: 20230222
  3. INVESTIGATIONAL PRODUCT [Suspect]
     Active Substance: INVESTIGATIONAL PRODUCT
     Indication: Bile duct cancer

REACTIONS (2)
  - Thrombocytopenia [Recovered/Resolved]
  - Neutropenia [Recovered/Resolved]

NARRATIVE: CASE EVENT DATE: 20230222
